FAERS Safety Report 12190141 (Version 1)
Quarter: 2016Q1

REPORT INFORMATION
  Report Type: Spontaneous
  Country: SE (occurrence: SE)
  Receive Date: 20160318
  Receipt Date: 20160318
  Transmission Date: 20160526
  Serious: Yes (Hospitalization, Other)
  Sender: FDA-Public Use
  Company Number: SE-SHIRE-SE201602880

PATIENT
  Age: 19 Year
  Sex: Female

DRUGS (6)
  1. ELVANSE [Suspect]
     Active Substance: LISDEXAMFETAMINE DIMESYLATE
     Dosage: UNK UNK, UNKNOWN
     Route: 065
  2. SERTRALINE [Suspect]
     Active Substance: SERTRALINE HYDROCHLORIDE
     Indication: PRODUCT USED FOR UNKNOWN INDICATION
     Dosage: 800 MG, UNKNOWN
     Route: 065
     Dates: start: 20160223, end: 20160224
  3. SERTRALINE [Suspect]
     Active Substance: SERTRALINE HYDROCHLORIDE
     Dosage: UNK UNK, UNKNOWN
     Route: 065
  4. ELVANSE [Suspect]
     Active Substance: LISDEXAMFETAMINE DIMESYLATE
     Indication: ATTENTION DEFICIT/HYPERACTIVITY DISORDER
     Dosage: 150 MG, ( FIVE 30 MG CAPSULES)UNKNOWN
     Route: 048
     Dates: start: 20160223, end: 20160224
  5. QUETIAPINE [Suspect]
     Active Substance: QUETIAPINE
     Dosage: UNK UNK, UNKNOWN
     Route: 065
  6. QUETIAPINE [Suspect]
     Active Substance: QUETIAPINE
     Indication: PRODUCT USED FOR UNKNOWN INDICATION
     Dosage: 300 MG,( TWELVE 25 MG TABLETS)  UNKNOWN
     Route: 065
     Dates: start: 20160223, end: 20160224

REACTIONS (4)
  - Toxicity to various agents [Recovered/Resolved]
  - Self injurious behaviour [Recovered/Resolved]
  - Intentional overdose [Recovered/Resolved]
  - Mydriasis [Recovered/Resolved]

NARRATIVE: CASE EVENT DATE: 201602
